FAERS Safety Report 8217141-3 (Version None)
Quarter: 2012Q1

REPORT INFORMATION
  Report Type: 
  Country: None (occurrence: None)
  Receive Date: 20120319
  Receipt Date: 20120314
  Transmission Date: 20120608
  Serious: No
  Sender: FDA-Public Use
  Company Number: US-BIOGENIDEC-2012BI009244

PATIENT
  Age: 31 Year
  Sex: Female

DRUGS (2)
  1. TYSABRI [Suspect]
     Indication: MULTIPLE SCLEROSIS
     Route: 042
     Dates: start: 20080825, end: 20101216
  2. TYSABRI [Suspect]
     Route: 042
     Dates: start: 20120306

REACTIONS (3)
  - FATIGUE [None]
  - MIGRAINE [None]
  - DRUG EFFECT DECREASED [None]
